FAERS Safety Report 6488953-1 (Version None)
Quarter: 2009Q4

REPORT INFORMATION
  Report Type: 
  Country: None (occurrence: None)
  Receive Date: 20091207
  Receipt Date: 20091112
  Transmission Date: 20100525
  Serious: Yes (Other)
  Sender: FDA-Public Use
  Company Number: JPI-P-009249

PATIENT
  Age: 59 Year
  Sex: Female

DRUGS (3)
  1. XYREM [Suspect]
     Indication: DRUG USE FOR UNKNOWN INDICATION
     Dosage: 7 GM (3.5 GM,2 IN 1 D),ORAL ; (10.5 GM,1 ),ORAL ; (1 IN 1 D),ORAL
     Route: 048
     Dates: start: 20091111, end: 20091111
  2. XYREM [Suspect]
     Indication: DRUG USE FOR UNKNOWN INDICATION
     Dosage: 7 GM (3.5 GM,2 IN 1 D),ORAL ; (10.5 GM,1 ),ORAL ; (1 IN 1 D),ORAL
     Route: 048
     Dates: start: 20040805
  3. ZOLPIDEM [Concomitant]

REACTIONS (7)
  - DISSOCIATION [None]
  - FEELING ABNORMAL [None]
  - GASTROINTESTINAL PAIN [None]
  - NASAL DISORDER [None]
  - NAUSEA [None]
  - SINUS DISORDER [None]
  - TACHYCARDIA [None]
